FAERS Safety Report 10047183 (Version 1)
Quarter: 2014Q1

REPORT INFORMATION
  Report Type: Spontaneous
  Country: US (occurrence: US)
  Receive Date: 20140331
  Receipt Date: 20140331
  Transmission Date: 20141002
  Serious: No
  Sender: FDA-Public Use
  Company Number: US-MYLANLABS-2013S1017423

PATIENT
  Age: 65 Year
  Sex: Male

DRUGS (22)
  1. FENTANYL TRANSDERMAL SYSTEM [Suspect]
     Indication: PAIN
     Dosage: CHANGE PATCH EVERY 3 DAYS.
     Route: 062
  2. HYDROCODONE [Concomitant]
     Indication: PAIN
     Dosage: TAKEN FOR YEARS.
     Route: 048
  3. VERAPAMIL SR [Concomitant]
     Indication: HYPERTENSION
     Dosage: TAKE 21 120MG TABLETS BID.
     Route: 048
  4. FUROSEMIDE [Concomitant]
     Route: 048
  5. ATORVASTATIN [Concomitant]
     Route: 048
  6. FINASTERIDE [Concomitant]
     Indication: BLADDER DISORDER
     Route: 048
  7. TAMSULOSIN [Concomitant]
     Indication: BLADDER DISORDER
     Route: 048
  8. LISINOPRIL [Concomitant]
     Route: 048
  9. CETIRIZINE [Concomitant]
     Indication: MULTIPLE ALLERGIES
     Route: 048
  10. BUSPIRONE [Concomitant]
     Indication: MENTAL DISORDER
     Dosage: TAKE 2 -10MG TABLETS TID.
     Route: 048
  11. RANITIDINE [Concomitant]
     Indication: GASTROOESOPHAGEAL REFLUX DISEASE
     Route: 048
  12. CYCLOBENZAPRINE [Concomitant]
     Indication: MUSCLE SPASMS
     Route: 048
  13. GLIPIZIDE [Concomitant]
     Indication: DIABETES MELLITUS
     Route: 048
  14. KLONOPIN [Concomitant]
     Dosage: SIG: 1 BID AND 2 HS.
     Route: 048
  15. PEARLS IC [Concomitant]
     Indication: GASTROINTESTINAL DISORDER
  16. RESTASIS [Concomitant]
     Indication: DRY EYE
  17. FLURBIPROFEN SODIUM [Concomitant]
     Dosage: 0.03%
     Route: 047
  18. CROMOLYN SODIUM [Concomitant]
  19. AZITHROMYCIN [Concomitant]
     Indication: INFECTION
     Dosage: TAKE AS DIRECTED.
     Route: 048
  20. MUCUS RELIEF DM [Concomitant]
  21. TRIAMCINOLONE ACETONIDE [Concomitant]
     Dosage: 0.5%
  22. KETOCONAZOLE [Concomitant]
     Dosage: 0.2% APPLY TO ARM, ELBOW, AND SCALP AS DIRECTED.
     Route: 061

REACTIONS (4)
  - Drug withdrawal syndrome [Not Recovered/Not Resolved]
  - Pain [Not Recovered/Not Resolved]
  - Headache [Not Recovered/Not Resolved]
  - Formication [Not Recovered/Not Resolved]
